FAERS Safety Report 10539287 (Version 1)
Quarter: 2014Q4

REPORT INFORMATION
  Report Type: Spontaneous
  Country: US (occurrence: US)
  Receive Date: 20141023
  Receipt Date: 20141023
  Transmission Date: 20150529
  Serious: Yes (Hospitalization)
  Sender: FDA-Public Use
  Company Number: PHHY2014US136657

PATIENT
  Age: 67 Year
  Sex: Female

DRUGS (2)
  1. CEFTRIAXONE. [Suspect]
     Active Substance: CEFTRIAXONE
     Indication: PRODUCT USED FOR UNKNOWN INDICATION
     Route: 042
  2. VANCOMYCIN [Suspect]
     Active Substance: VANCOMYCIN
     Indication: PRODUCT USED FOR UNKNOWN INDICATION
     Route: 042

REACTIONS (21)
  - Cerebral infarction [Recovered/Resolved]
  - Dermatitis exfoliative [Recovered/Resolved]
  - Lymphadenopathy [Recovered/Resolved]
  - Eosinophilic pneumonia [Recovered/Resolved]
  - Encephalopathy [Recovered/Resolved]
  - Cerebellar infarction [Recovered/Resolved]
  - Pyrexia [Recovered/Resolved]
  - Myalgia [Recovered/Resolved]
  - Drug reaction with eosinophilia and systemic symptoms [Recovered/Resolved]
  - Cerebrovascular accident [Recovered/Resolved]
  - Mental status changes [Recovered/Resolved]
  - Arthralgia [Recovered/Resolved]
  - Rash [Recovered/Resolved]
  - Leukocytosis [Recovered/Resolved]
  - Blood creatinine increased [Recovered/Resolved]
  - Speech disorder [Recovered/Resolved]
  - Lymphocyte morphology abnormal [Recovered/Resolved]
  - Eosinophilia [Recovered/Resolved]
  - Disorientation [Recovered/Resolved]
  - Blood alkaline phosphatase increased [Recovered/Resolved]
  - Dermatitis [Recovered/Resolved]
